FAERS Safety Report 6844654-9 (Version None)
Quarter: 2010Q3

REPORT INFORMATION
  Report Type: 
  Country: None (occurrence: None)
  Receive Date: 20100715
  Receipt Date: 20100709
  Transmission Date: 20110219
  Serious: Yes (Other)
  Sender: FDA-Public Use
  Company Number: US-BAXTER-2010BH018286

PATIENT
  Age: 60 Year
  Sex: Male

DRUGS (2)
  1. ADENOSINE [Suspect]
     Indication: TACHYCARDIA
     Route: 042
  2. ADENOSINE [Suspect]
     Indication: OFF LABEL USE
     Route: 042

REACTIONS (1)
  - CARDIAC ARREST [None]
